FAERS Safety Report 22361414 (Version 1)
Quarter: 2023Q2

REPORT INFORMATION
  Report Type: Spontaneous
  Country: US (occurrence: None)
  Receive Date: 20230523
  Receipt Date: 20230523
  Transmission Date: 20230721
  Serious: No
  Sender: FDA-Public Use
  Company Number: None

PATIENT
  Sex: Female

DRUGS (8)
  1. TALTZ [Suspect]
     Active Substance: IXEKIZUMAB
     Indication: Psoriasis
     Dosage: INJECT 80 MG UNDER THE SKIN (SUBCUTANEOUS INJECTION) EVERY 4 WEEKS
     Route: 058
     Dates: start: 20230405
  2. CINNAMON CAP [Concomitant]
  3. LISINOPRIL [Concomitant]
     Active Substance: LISINOPRIL
  4. OZEMPIC [Concomitant]
     Active Substance: SEMAGLUTIDE
  5. ROSUVASTATIN [Concomitant]
     Active Substance: ROSUVASTATIN
  6. SYNTHROID [Concomitant]
     Active Substance: LEVOTHYROXINE SODIUM
  7. TOUJEO SOLO INJ [Concomitant]
  8. TUMERSAID [Concomitant]

REACTIONS (2)
  - Pain [None]
  - Neoplasm malignant [None]
